FAERS Safety Report 12876775 (Version 3)
Quarter: 2016Q4

REPORT INFORMATION
  Report Type: Report from Study
  Country: GB (occurrence: GB)
  Receive Date: 20161024
  Receipt Date: 20161209
  Transmission Date: 20170207
  Serious: Yes (Death, Hospitalization)
  Sender: FDA-Public Use
  Company Number: GB-CELGENEUS-GBR-2016102619

PATIENT
  Age: 73 Year
  Sex: Male
  Weight: 97.5 kg

DRUGS (10)
  1. AZACITIDINE INJECTABLE [Suspect]
     Active Substance: AZACITIDINE
     Indication: ACUTE MYELOID LEUKAEMIA
     Dosage: 150MG
     Route: 058
     Dates: start: 20160830, end: 20160908
  2. CIPROFLOXACIN. [Concomitant]
     Active Substance: CIPROFLOXACIN
     Indication: INFECTION PROPHYLAXIS
     Dosage: 1000MG
     Route: 065
     Dates: start: 20160831
  3. CIPROFLOXACIN. [Concomitant]
     Active Substance: CIPROFLOXACIN
     Dosage: 1000MG
     Route: 065
     Dates: start: 20160823, end: 20160915
  4. FLUCONAZOLE. [Concomitant]
     Active Substance: FLUCONAZOLE
     Indication: INFECTION PROPHYLAXIS
     Dosage: 400MG
     Route: 065
     Dates: start: 20160823, end: 20160915
  5. IBUPROFEN. [Concomitant]
     Active Substance: IBUPROFEN
     Indication: ERYTHEMA
     Route: 061
     Dates: start: 20160830, end: 20160913
  6. CYCLIZINE [Concomitant]
     Active Substance: CYCLIZINE
     Indication: PROPHYLAXIS
     Route: 065
     Dates: start: 20160830, end: 20160915
  7. ONDANSETRON [Concomitant]
     Active Substance: ONDANSETRON
     Indication: ANTIEMETIC SUPPORTIVE CARE
     Route: 065
     Dates: start: 20160830, end: 20160908
  8. ACICLOVIR [Concomitant]
     Active Substance: ACYCLOVIR
     Indication: INFECTION PROPHYLAXIS
     Dosage: 800MG
     Route: 065
     Dates: start: 20160823
  9. REVLIMID [Suspect]
     Active Substance: LENALIDOMIDE
     Indication: ACUTE MYELOID LEUKAEMIA
     Dosage: 25MG
     Route: 048
     Dates: start: 20160909, end: 20160921
  10. FLUCONAZOLE. [Concomitant]
     Active Substance: FLUCONAZOLE
     Dosage: 800MG
     Route: 065
     Dates: start: 20160823

REACTIONS (1)
  - Sepsis [Fatal]

NARRATIVE: CASE EVENT DATE: 20160915
